FAERS Safety Report 6468809-0 (Version None)
Quarter: 2009Q4

REPORT INFORMATION
  Report Type: 
  Country: None (occurrence: None)
  Receive Date: 20091203
  Receipt Date: 20080206
  Transmission Date: 20100525
  Serious: Yes (Death, Hospitalization)
  Sender: FDA-Public Use
  Company Number: US-LLY-US200603005387

PATIENT
  Sex: Female

DRUGS (10)
  1. TERIPARATIDE [Suspect]
     Indication: OSTEOPOROSIS
     Dosage: 20 UG, DAILY (1/D)
     Route: 058
     Dates: start: 20050907
  2. PROCRIT [Concomitant]
     Indication: ANAEMIA
     Dosage: 8000 U, WEEKLY (1/W)
  3. POTASSIUM [Concomitant]
     Dosage: 20 MEQ, DAILY (1/D)
  4. LASIX [Concomitant]
     Dosage: 40 MG, DAILY (1/D)
  5. LIPITOR [Concomitant]
     Dosage: 10 MG, DAILY (1/D)
  6. IMDUR [Concomitant]
     Dosage: 30 MG, DAILY (1/D)
  7. LOPRESSOR [Concomitant]
     Dosage: 25 MG, 2/D
  8. PEPCID [Concomitant]
     Dosage: 20 MG, 2/D
  9. ATIVAN [Concomitant]
     Dosage: UNK, AS NEEDED
  10. PERCOCET [Concomitant]
     Dosage: UNK, AS NEEDED

REACTIONS (2)
  - CELLULITIS [None]
  - VENTRICULAR ARRHYTHMIA [None]
